FAERS Safety Report 6095506-6 (Version None)
Quarter: 2009Q1

REPORT INFORMATION
  Report Type: 
  Country: None (occurrence: None)
  Receive Date: 20090227
  Receipt Date: 20080408
  Transmission Date: 20090719
  Serious: No
  Sender: FDA-Public Use
  Company Number: A0722962A

PATIENT
  Sex: Female

DRUGS (6)
  1. LAMICTAL [Suspect]
     Indication: BIPOLAR DISORDER
     Dosage: 100MG PER DAY
     Route: 048
     Dates: start: 20060101, end: 20080201
  2. PROVIGIL [Suspect]
     Indication: FATIGUE
     Dosage: 200MG PER DAY
     Route: 048
     Dates: start: 20070301, end: 20080229
  3. THYROID TAB [Concomitant]
     Dates: start: 20071229
  4. SPIRONOLACTONE [Concomitant]
  5. SARAFEM [Concomitant]
     Dates: start: 20060101
  6. UNKNOWN [Concomitant]
     Dates: start: 20070101

REACTIONS (3)
  - DRUG INEFFECTIVE [None]
  - FATIGUE [None]
  - HYPERHIDROSIS [None]
